FAERS Safety Report 5053779-2 (Version None)
Quarter: 2006Q3

REPORT INFORMATION
  Report Type: 
  Country: None (occurrence: None)
  Receive Date: 20060712
  Receipt Date: 20060628
  Transmission Date: 20061208
  Serious: Yes (Other)
  Sender: FDA-Public Use
  Company Number: 2006079530

PATIENT
  Age: 95 Year
  Sex: Female

DRUGS (4)
  1. SULPERAZON (SULBACTAM, CEFOPERAZONE) [Suspect]
     Indication: BILIARY TRACT DISORDER
     Dosage: 2 GRAM (1 GRAM, 2 IN 1 D), INTRAVENOUS
     Route: 042
     Dates: start: 20060503, end: 20060508
  2. DOPAMINE HCL [Concomitant]
  3. MEDIUM (BELLADONNA EXTRACT, ERGOTAMINE TARTRATE, MEPROBAMATE) [Concomitant]
  4. HUMULIN R [Concomitant]

REACTIONS (1)
  - HYPOPROTHROMBINAEMIA [None]
